FAERS Safety Report 12440942 (Version 2)
Quarter: 2016Q2

REPORT INFORMATION
  Report Type: Spontaneous
  Country: NO (occurrence: NO)
  Receive Date: 20160607
  Receipt Date: 20160610
  Transmission Date: 20160815
  Serious: Yes (Other)
  Sender: FDA-Public Use
  Company Number: NO-BIOGEN-2016BI00217410

PATIENT
  Age: 0 Year
  Sex: Female
  Weight: 1.79 kg

DRUGS (3)
  1. PENICILLIN [Concomitant]
     Active Substance: PENICILLIN
     Indication: PRETERM PREMATURE RUPTURE OF MEMBRANES
     Route: 064
  2. CELESTONE [Concomitant]
     Active Substance: BETAMETHASONE
     Indication: MATERNAL THERAPY TO ENHANCE FOETAL LUNG MATURITY
     Route: 064
  3. TYSABRI [Suspect]
     Active Substance: NATALIZUMAB
     Indication: MATERNAL EXPOSURE TIMING UNSPECIFIED
     Route: 064
     Dates: end: 20160216

REACTIONS (5)
  - Foetal exposure timing unspecified [Unknown]
  - Low birth weight baby [Unknown]
  - Umbilical cord vascular disorder [Unknown]
  - Infantile apnoea [Unknown]
  - Haemoglobin decreased [Unknown]

NARRATIVE: CASE EVENT DATE: 201508
